FAERS Safety Report 11857636 (Version 1)
Quarter: 2015Q4

REPORT INFORMATION
  Report Type: Spontaneous
  Country: US (occurrence: None)
  Receive Date: 20151221
  Receipt Date: 20151221
  Transmission Date: 20160305
  Serious: No
  Sender: FDA-Public Use
  Company Number: None

PATIENT
  Age: 67 Year
  Sex: Male
  Weight: 81.19 kg

DRUGS (4)
  1. VITAMIN E [Concomitant]
     Active Substance: .ALPHA.-TOCOPHEROL
  2. VITAMIN C [Concomitant]
     Active Substance: ASCORBIC ACID
  3. XARELTO [Suspect]
     Active Substance: RIVAROXABAN
     Indication: DEEP VEIN THROMBOSIS
     Route: 048
  4. ZINC [Concomitant]
     Active Substance: ZINC\ZINC CHLORIDE

REACTIONS (1)
  - Blister [None]
